FAERS Safety Report 25960302 (Version 2)
Quarter: 2025Q4

REPORT INFORMATION
  Report Type: Spontaneous
  Country: GB (occurrence: GB)
  Receive Date: 20251026
  Receipt Date: 20251124
  Transmission Date: 20260118
  Serious: Yes (Other)
  Sender: ASCEND THERAPEUTICS US, LLC
  Company Number: GB-Ascend Therapeutics US, LLC-2187312

PATIENT
  Age: 12 Year
  Sex: Female

DRUGS (2)
  1. ESTROGEL [Suspect]
     Active Substance: ESTRADIOL
     Indication: Product used for unknown indication
  2. ESTRADIOL [Suspect]
     Active Substance: ESTRADIOL

REACTIONS (2)
  - Vaginal haemorrhage [Recovered/Resolved]
  - Medication error [Unknown]

NARRATIVE: CASE EVENT DATE: 20250817
